FAERS Safety Report 5717401-1 (Version None)
Quarter: 2008Q2

REPORT INFORMATION
  Report Type: 
  Country: None (occurrence: None)
  Receive Date: 20080424
  Receipt Date: 20080424
  Transmission Date: 20081010
  Serious: No
  Sender: FDA-Public Use
  Company Number: None

PATIENT
  Age: 51 Year
  Sex: Female
  Weight: 77.1115 kg

DRUGS (2)
  1. ISOVUE-200 [Suspect]
     Indication: ARTHRALGIA
     Dosage: 1 CC DILUTED 50% IN SALINE ONE BOLUS INTRA-ARTICULAR
     Route: 014
     Dates: start: 20080409, end: 20080409
  2. OMNISCAN [Suspect]
     Indication: ARTHRALGIA
     Dosage: 10 CC 1:200 DILUTION ONE BOLUS INTRA-ARTICULAR
     Route: 014
     Dates: start: 20080409, end: 20080409

REACTIONS (5)
  - ARTHROPATHY [None]
  - HYPERSENSITIVITY [None]
  - PAIN [None]
  - SYNOVITIS [None]
  - TYPE I HYPERSENSITIVITY [None]
